FAERS Safety Report 10160867 (Version 1)
Quarter: 2014Q2

REPORT INFORMATION
  Report Type: Spontaneous
  Country: IT (occurrence: None)
  Receive Date: 20140506
  Receipt Date: 20140506
  Transmission Date: 20141212
  Serious: Yes (Other)
  Sender: FDA-Public Use
  Company Number: AUR-APL-2014-02703

PATIENT
  Age: 14 Year
  Sex: Female

DRUGS (1)
  1. AMOXICILLIN (AMOXICILLIN) [Suspect]
     Indication: PYREXIA
     Dosage: (1 GM, TOTAL), ORAL
     Route: 048
     Dates: start: 20060325, end: 20060325

REACTIONS (3)
  - Urticaria [None]
  - Drug abuse [None]
  - Dermatitis allergic [None]
